FAERS Safety Report 20198351 (Version 1)
Quarter: 2021Q4

REPORT INFORMATION
  Report Type: Spontaneous
  Country: US (occurrence: None)
  Receive Date: 20211216
  Receipt Date: 20211216
  Transmission Date: 20220303
  Serious: Yes (Hospitalization)
  Sender: FDA-Public Use
  Company Number: None

PATIENT
  Sex: Female

DRUGS (8)
  1. COSENTYX [Suspect]
     Active Substance: SECUKINUMAB
     Indication: Hidradenitis
     Dosage: FREQUENCY : EVERY 4 HOURS;?
     Route: 058
     Dates: start: 20210924
  2. ATORVASTATIN TAB [Concomitant]
  3. GLIPIZIDE [Suspect]
     Active Substance: GLIPIZIDE
  4. IRBESARTAN [Concomitant]
     Active Substance: IRBESARTAN
  5. JARDIANCE TAB [Concomitant]
  6. MONTELUKAST GRA 4MG [Concomitant]
  7. ZYRTEC ALLGY TAB [Concomitant]
  8. WIXELA INHUB [Concomitant]
     Active Substance: FLUTICASONE PROPIONATE\SALMETEROL XINAFOATE

REACTIONS (3)
  - Condition aggravated [None]
  - Surgery [None]
  - Hidradenitis [None]
